FAERS Safety Report 19368550 (Version 2)
Quarter: 2024Q1

REPORT INFORMATION
  Report Type: Other
  Country: US (occurrence: None)
  Receive Date: 20210602
  Receipt Date: 20240301
  Transmission Date: 20240410
  Serious: No
  Sender: FDA-Public Use
  Company Number: US-ROCHE-2674987

PATIENT
  Age: 32 Year
  Sex: Female
  Weight: 72.64 kg

DRUGS (5)
  1. OCREVUS [Suspect]
     Active Substance: OCRELIZUMAB
     Indication: Relapsing-remitting multiple sclerosis
     Dosage: FULL DOSE?OCREVUS WAS ON 10/MAY/2023.
     Route: 042
     Dates: start: 20190909, end: 202202
  2. OCREVUS [Suspect]
     Active Substance: OCRELIZUMAB
     Dosage: FULL DOSE
     Route: 042
     Dates: start: 202006
  3. OCREVUS [Suspect]
     Active Substance: OCRELIZUMAB
     Route: 042
     Dates: start: 2023, end: 202305
  4. ERGOCALCIFEROL [Concomitant]
     Active Substance: ERGOCALCIFEROL
     Route: 048
  5. KESIMPTA [Concomitant]
     Active Substance: OFATUMUMAB

REACTIONS (16)
  - Pancreatic enzymes increased [Not Recovered/Not Resolved]
  - Amylase increased [Unknown]
  - Hypertension [Unknown]
  - Hepatic enzyme increased [Unknown]
  - Upper respiratory tract infection [Recovered/Resolved]
  - Upper-airway cough syndrome [Recovered/Resolved]
  - Liver function test abnormal [Recovered/Resolved]
  - Hypertension [Not Recovered/Not Resolved]
  - Conjunctivitis [Recovered/Resolved]
  - Sinusitis [Recovered/Resolved]
  - Cough [Recovered/Resolved]
  - Sputum discoloured [Not Recovered/Not Resolved]
  - Pharyngeal erythema [Unknown]
  - Purulence [Unknown]
  - Haemophilus infection [Unknown]
  - Blepharitis [Unknown]

NARRATIVE: CASE EVENT DATE: 20200903
